FAERS Safety Report 10559849 (Version 2)
Quarter: 2014Q4

REPORT INFORMATION
  Report Type: Spontaneous
  Country: US (occurrence: US)
  Receive Date: 20141103
  Receipt Date: 20141202
  Transmission Date: 20150529
  Serious: No
  Sender: FDA-Public Use
  Company Number: US-JNJFOC-20141019557

PATIENT
  Sex: Female
  Weight: 71.67 kg

DRUGS (1)
  1. INVOKANA [Suspect]
     Active Substance: CANAGLIFLOZIN
     Indication: DIABETES MELLITUS
     Route: 048
     Dates: start: 20140916, end: 20141006

REACTIONS (2)
  - Vaginal haemorrhage [Recovered/Resolved]
  - Blood urine present [Recovered/Resolved]
